FAERS Safety Report 12146093 (Version 1)
Quarter: 2016Q1

REPORT INFORMATION
  Report Type: Spontaneous
  Country: US (occurrence: US)
  Receive Date: 20160304
  Receipt Date: 20160304
  Transmission Date: 20160526
  Serious: No
  Sender: FDA-Public Use
  Company Number: US-PERRIGO-15US007250

PATIENT
  Age: 49 Year
  Sex: Female
  Weight: 80.27 kg

DRUGS (2)
  1. NAPROXEN SODIUM 220 MG 490 [Suspect]
     Active Substance: NAPROXEN SODIUM
     Indication: ARTHRALGIA
     Dosage: 440 MG, SINGLE
     Route: 048
     Dates: start: 20150708, end: 20150708
  2. NAPROXEN SODIUM 220 MG 490 [Suspect]
     Active Substance: NAPROXEN SODIUM
     Dosage: 440 MG, SINGLE
     Route: 048
     Dates: start: 201507, end: 201507

REACTIONS (1)
  - Drug ineffective [Unknown]

NARRATIVE: CASE EVENT DATE: 20150708
